FAERS Safety Report 25655351 (Version 1)
Quarter: 2025Q3

REPORT INFORMATION
  Report Type: Spontaneous
  Country: US (occurrence: None)
  Receive Date: 20250807
  Receipt Date: 20250807
  Transmission Date: 20251021
  Serious: Yes (Other)
  Sender: FDA-CTU
  Company Number: None

PATIENT
  Age: 75 Year
  Sex: Male
  Weight: 76.95 kg

DRUGS (2)
  1. GAMUNEX [Suspect]
     Active Substance: HUMAN IMMUNOGLOBULIN G
     Indication: Immunodeficiency
     Route: 058
     Dates: start: 20221013, end: 20250724
  2. GAMUNEX [Concomitant]
     Active Substance: HUMAN IMMUNOGLOBULIN G
     Dates: start: 20220213, end: 20250724

REACTIONS (5)
  - Infusion site pruritus [None]
  - Infusion site pain [None]
  - Infusion site inflammation [None]
  - Infusion site erythema [None]
  - Infusion site swelling [None]

NARRATIVE: CASE EVENT DATE: 20250703
